FAERS Safety Report 25606137 (Version 1)
Quarter: 2025Q3

REPORT INFORMATION
  Report Type: Spontaneous
  Country: EU (occurrence: EU)
  Receive Date: 20250725
  Receipt Date: 20250725
  Transmission Date: 20251020
  Serious: Yes (Hospitalization, Other)
  Sender: RANBAXY
  Company Number: EU-SUN PHARMACEUTICAL INDUSTRIES INC-2025R1-518564

PATIENT
  Age: 61 Year
  Sex: Male

DRUGS (2)
  1. PREDNISONE [Suspect]
     Active Substance: PREDNISONE
     Indication: Cardiac sarcoidosis
     Dosage: 80 MILLIGRAM, QD
     Route: 065
  2. PREDNISONE [Suspect]
     Active Substance: PREDNISONE
     Dosage: 10 MILLIGRAM, QD
     Route: 065

REACTIONS (5)
  - Hypertension [Unknown]
  - Hepatitis B reactivation [Unknown]
  - Oedema peripheral [Unknown]
  - Steroid diabetes [Unknown]
  - Secondary adrenocortical insufficiency [Unknown]
